FAERS Safety Report 4346166-3 (Version None)
Quarter: 2004Q2

REPORT INFORMATION
  Report Type: 
  Country: None (occurrence: None)
  Receive Date: 20040426
  Receipt Date: 20040414
  Transmission Date: 20050107
  Serious: Yes (Hospitalization)
  Sender: FDA-Public Use
  Company Number: US-BRISTOL-MYERS SQUIBB COMPANY-12560405

PATIENT
  Age: 56 Year
  Sex: Male
  Weight: 85 kg

DRUGS (11)
  1. SERZONE [Suspect]
     Indication: DEPRESSION
     Route: 048
     Dates: start: 20031016
  2. XANAX [Concomitant]
  3. ATENOLOL [Concomitant]
     Dosage: DURATION: ^LONG TIME^
  4. ZESTRIL [Concomitant]
     Dosage: DURATION: 1 TO 1.5 YEARS
  5. ZETIA [Concomitant]
  6. COUMADIN [Concomitant]
  7. PRAVACHOL [Concomitant]
     Dosage: DURATION: ^FOR YEARS^
  8. ECOTRIN [Concomitant]
     Dosage: DURATION: ^FOR YEARS^
  9. SOTALOL HCL [Concomitant]
     Dosage: DURATION: LESS THAN ONE MONTH
  10. FERROUS SULFATE TAB [Concomitant]
  11. SAW PALMETTO [Concomitant]
     Dosage: DURATION: ^FOR YEARS^

REACTIONS (4)
  - FATIGUE [None]
  - HYPERTHYROIDISM [None]
  - LABORATORY TEST ABNORMAL [None]
  - WEIGHT DECREASED [None]
